FAERS Safety Report 7228121-9 (Version None)
Quarter: 2011Q1

REPORT INFORMATION
  Report Type: 
  Country: None (occurrence: None)
  Receive Date: 20110106
  Receipt Date: 20101207
  Transmission Date: 20110831
  Serious: Yes (Disabling, Other)
  Sender: FDA-Public Use
  Company Number: ALA_01454_2011

PATIENT
  Sex: Female

DRUGS (1)
  1. REGLAN [Suspect]
     Indication: GASTROINTESTINAL DISORDER
     Dosage: 10 MG ORAL
     Route: 048
     Dates: start: 20060301

REACTIONS (13)
  - ANXIETY [None]
  - DYSKINESIA [None]
  - AKATHISIA [None]
  - EXTRAPYRAMIDAL DISORDER [None]
  - TARDIVE DYSKINESIA [None]
  - ECONOMIC PROBLEM [None]
  - DEFORMITY [None]
  - NERVOUS SYSTEM DISORDER [None]
  - PAIN [None]
  - CONFUSIONAL STATE [None]
  - MEMORY IMPAIRMENT [None]
  - GAIT DISTURBANCE [None]
  - INJURY [None]
